FAERS Safety Report 8902773 (Version 1)
Quarter: 2012Q4

REPORT INFORMATION
  Report Type: 
  Country: GR (occurrence: GR)
  Receive Date: 20121112
  Receipt Date: 20121112
  Transmission Date: 20130627
  Serious: Yes (Other)
  Sender: FDA-Public Use
  Company Number: GR-MYLANLABS-2012S1022600

PATIENT
  Age: 62 Year
  Sex: Male

DRUGS (5)
  1. VITAMIN K2 [Suspect]
     Indication: CORONARY ARTERY DISEASE
     Dosage: 100 micrograms daily
     Route: 065
  2. ALFUZOSIN [Interacting]
     Indication: CORONARY ARTERY DISEASE
     Dosage: 10mg daily
     Route: 048
  3. ROSUVASTATIN [Concomitant]
     Dosage: 10mg daily
     Route: 048
  4. ASPIRIN [Concomitant]
     Dosage: 100mg daily
     Route: 048
  5. ATENOLOL [Concomitant]
     Dosage: 25mg daily
     Route: 048

REACTIONS (4)
  - Hypotension [Unknown]
  - Drug interaction [Unknown]
  - Dizziness [None]
  - Asthenia [None]
